FAERS Safety Report 15803190 (Version 1)
Quarter: 2019Q1

REPORT INFORMATION
  Report Type: Spontaneous
  Country: US (occurrence: US)
  Receive Date: 20190109
  Receipt Date: 20190109
  Transmission Date: 20190417
  Serious: No
  Sender: FDA-Public Use
  Company Number: US-GILEAD-2019-0382972

PATIENT
  Age: 64 Year
  Sex: Male

DRUGS (1)
  1. VEMLIDY [Suspect]
     Active Substance: TENOFOVIR ALAFENAMIDE FUMARATE
     Indication: CHRONIC HEPATITIS B
     Dosage: 25 MG
     Route: 048
     Dates: start: 201702

REACTIONS (2)
  - Pruritus [Not Recovered/Not Resolved]
  - Bed bug infestation [Not Recovered/Not Resolved]

NARRATIVE: CASE EVENT DATE: 201812
